FAERS Safety Report 6543355-4 (Version None)
Quarter: 2010Q1

REPORT INFORMATION
  Report Type: 
  Country: None (occurrence: None)
  Receive Date: 20100120
  Receipt Date: 20100114
  Transmission Date: 20100710
  Serious: Yes (Death, Life-Threatening, Hospitalization)
  Sender: FDA-Public Use
  Company Number: GB-ELI_LILLY_AND_COMPANY-GB200909004207

PATIENT
  Sex: Female
  Weight: 65.6 kg

DRUGS (22)
  1. GEMCITABINE HCL [Suspect]
     Indication: DIFFUSE LARGE B-CELL LYMPHOMA
     Dosage: 1285 MG, OTHER ON DAY 1
     Route: 042
     Dates: start: 20090826
  2. GEMCITABINE HCL [Suspect]
     Dosage: 969 MG, OTHER ON DAY 8
     Route: 042
     Dates: start: 20090902
  3. CYCLOPHOSPHAMIDE [Suspect]
     Indication: DIFFUSE LARGE B-CELL LYMPHOMA
     Dosage: 1300 MG, UNKNOWN
     Route: 042
     Dates: start: 20090826
  4. VINCRISTINE SULFATE [Suspect]
     Indication: DIFFUSE LARGE B-CELL LYMPHOMA
     Dosage: 2 U, UNKNOWN
     Route: 042
     Dates: start: 20090826
  5. RITUXIMAB [Suspect]
     Indication: DIFFUSE LARGE B-CELL LYMPHOMA
     Dosage: 645 U, UNKNOWN
     Route: 042
     Dates: start: 20090826
  6. PEGFILGRASTIM [Suspect]
     Indication: DIFFUSE LARGE B-CELL LYMPHOMA
     Dosage: 6 MG, ON DAY 9
     Route: 058
     Dates: start: 20090903
  7. ITRACONAZOLE [Concomitant]
     Dosage: 200 MG, 2/D
     Route: 048
  8. ACICLOVIR [Concomitant]
     Dosage: 200 MG, 3/D
     Route: 048
  9. VANCOMYCIN [Concomitant]
     Dosage: 750 MG, 2/D
     Route: 042
  10. FRUSEMIDE [Concomitant]
     Dosage: 40 MG, 2/D
     Route: 048
  11. FRUSEMIDE [Concomitant]
     Dosage: 20 MG, DAILY (1/D) (1XSTAT)
     Route: 042
     Dates: start: 20090907, end: 20090907
  12. FRAGMIN [Concomitant]
     Dosage: 6250 UG, DAILY (1/D)
     Route: 058
  13. ALLOPURINOL [Concomitant]
     Dosage: 300 MG, DAILY (1/D)
     Route: 048
  14. OMEPRAZOLE [Concomitant]
     Dosage: 20 MG, DAILY (1/D)
     Route: 048
  15. ATENOLOL [Concomitant]
     Dosage: 50 MG, DAILY (1/D)
     Route: 048
  16. ATENOLOL [Concomitant]
     Dosage: 50 MG, DAILY (1/D) (1XSTAT)
     Route: 048
     Dates: start: 20090909
  17. SIMVASTATIN [Concomitant]
     Dosage: 20 MG, DAILY (1/D)
     Route: 048
  18. FENTANYL [Concomitant]
     Dosage: 75 UG, EVERY 3 DAYS
     Route: 061
  19. FLUCONAZOLE [Concomitant]
     Dosage: 200 MG, 2/D
  20. CARBAZOCHROME [Concomitant]
     Dosage: 2 D/F, DAILY (1/D)
     Route: 048
  21. POTASSIUM [Concomitant]
     Dosage: 2 D/F, DAILY (1/D)
     Route: 048
  22. NEUPOGEN [Concomitant]
     Dosage: 300 U, DAILY (1/D)
     Route: 058
     Dates: start: 20090901, end: 20090903

REACTIONS (6)
  - ATRIAL FIBRILLATION [None]
  - BRONCHOPNEUMONIA [None]
  - DRUG TOXICITY [None]
  - LEUKOPENIA [None]
  - NEUTROPENIA [None]
  - PLEURAL EFFUSION [None]
